FAERS Safety Report 23968847 (Version 2)
Quarter: 2024Q3

REPORT INFORMATION
  Report Type: Spontaneous
  Country: US (occurrence: US)
  Receive Date: 20240612
  Receipt Date: 20240715
  Transmission Date: 20241017
  Serious: Yes (Hospitalization)
  Sender: TEVA
  Company Number: US-TEVA-VS-3207006

PATIENT
  Age: 58 Year
  Sex: Female

DRUGS (1)
  1. IMATINIB [Suspect]
     Active Substance: IMATINIB
     Indication: Gastrointestinal stromal tumour
     Dosage: FOR THREE YEARS
     Route: 065

REACTIONS (2)
  - Gastrointestinal stromal tumour [Unknown]
  - Transdifferentiation of neoplasm [Unknown]
